FAERS Safety Report 16827879 (Version 2)
Quarter: 2019Q3

REPORT INFORMATION
  Report Type: Spontaneous
  Country: US (occurrence: US)
  Receive Date: 20190919
  Receipt Date: 20190920
  Transmission Date: 20191005
  Serious: No
  Sender: FDA-Public Use
  Company Number: US-PFIZER INC-2019404265

PATIENT
  Age: 57 Year
  Sex: Female
  Weight: 65.77 kg

DRUGS (1)
  1. RELPAX [Suspect]
     Active Substance: ELETRIPTAN HYDROBROMIDE
     Indication: MIGRAINE
     Dosage: 40 MG, AS NEEDED, [40 MG ONE AS NEEDED]
     Route: 048
     Dates: end: 20190911

REACTIONS (7)
  - Malaise [Unknown]
  - Nausea [Recovering/Resolving]
  - Pyrexia [Unknown]
  - Dizziness [Recovering/Resolving]
  - Gastric disorder [Unknown]
  - White blood cell count increased [Unknown]
  - Recalled product administered [Unknown]

NARRATIVE: CASE EVENT DATE: 20190807
